FAERS Safety Report 5960045-7 (Version None)
Quarter: 2008Q4

REPORT INFORMATION
  Report Type: 
  Country: None (occurrence: None)
  Receive Date: 20081119
  Receipt Date: 20081119
  Transmission Date: 20090506
  Serious: Yes (Hospitalization)
  Sender: FDA-Public Use
  Company Number: None

PATIENT
  Age: 48 Year
  Sex: Male
  Weight: 110 kg

DRUGS (8)
  1. TOBRAMYCIN [Suspect]
     Indication: BACTERAEMIA
     Dosage: 550 MG IV Q 36 HOURS
  2. ACYCLOVIR [Concomitant]
  3. HEPARIN [Concomitant]
  4. METRONIDAZOLE [Concomitant]
  5. CALCIUM CARBONATE [Concomitant]
  6. LINEZOLID [Concomitant]
  7. LACTULOSE [Concomitant]
  8. RANITIDINE [Concomitant]

REACTIONS (5)
  - ABDOMINAL PAIN [None]
  - CONFUSIONAL STATE [None]
  - DYSPNOEA [None]
  - HAEMODIALYSIS [None]
  - RENAL FAILURE ACUTE [None]
